FAERS Safety Report 15670343 (Version 15)
Quarter: 2019Q4

REPORT INFORMATION
  Report Type: Report from Study
  Country: DE (occurrence: DE)
  Receive Date: 20181129
  Receipt Date: 20191212
  Transmission Date: 20200122
  Serious: Yes (Life-Threatening, Hospitalization)
  Sender: FDA-Public Use
  Company Number: DE-PFIZER INC-2018480200

PATIENT
  Age: 63 Year
  Sex: Male
  Weight: 76 kg

DRUGS (11)
  1. AXITINIB [Suspect]
     Active Substance: AXITINIB
     Dosage: 4 MG, 1X/DAY (FLUCTUATING DOSES)
     Route: 048
     Dates: start: 20180919, end: 20181115
  2. PEMBROLIZUMAB. [Suspect]
     Active Substance: PEMBROLIZUMAB
     Dosage: 200 MG, EVERY 3 WEEKS
     Route: 042
     Dates: start: 20181004, end: 20181115
  3. PEMBROLIZUMAB. [Suspect]
     Active Substance: PEMBROLIZUMAB
     Indication: RENAL CELL CARCINOMA
     Dosage: 200 MG, EVERY 3 WEEKS (INFUSION VOLUME 100 ML)
     Route: 042
     Dates: start: 20170821, end: 20180822
  4. PEMBROLIZUMAB. [Suspect]
     Active Substance: PEMBROLIZUMAB
     Dosage: 200 MG, EVERY 3 WEEKS
     Route: 042
     Dates: start: 20180912, end: 20180912
  5. BISOPROLOL [Concomitant]
     Active Substance: BISOPROLOL
     Dosage: 5 MG, UNK
     Dates: start: 200505
  6. AMLODIPINE [Concomitant]
     Active Substance: AMLODIPINE BESYLATE
     Dosage: 5 MG, UNK
     Dates: start: 200505
  7. CALCIUM [Concomitant]
     Active Substance: CALCIUM
     Dosage: 0.25 UG, UNK
     Dates: start: 20170626
  8. PALLADON [Concomitant]
     Active Substance: HYDROMORPHONE
     Dosage: 1.3 MG, UNK
     Dates: start: 20170703
  9. CYANOCOBALAMIN. [Concomitant]
     Active Substance: CYANOCOBALAMIN
     Dosage: 100 UG, UNK
     Route: 058
     Dates: start: 20180514
  10. AXITINIB [Suspect]
     Active Substance: AXITINIB
     Indication: RENAL CELL CARCINOMA
     Dosage: STARTING DOSE AT 5 MG, 2X/DAY (FLUCTUATED DOSES)
     Route: 048
     Dates: start: 20170821, end: 20180821
  11. AXITINIB [Suspect]
     Active Substance: AXITINIB
     Dosage: 4 MG, 1X/DAY
     Route: 048
     Dates: start: 20180822, end: 20180902

REACTIONS (1)
  - Autoimmune pancreatitis [Recovered/Resolved]

NARRATIVE: CASE EVENT DATE: 20180912
